FAERS Safety Report 25752939 (Version 1)
Quarter: 2025Q3

REPORT INFORMATION
  Report Type: Spontaneous
  Country: EU (occurrence: EU)
  Receive Date: 20250902
  Receipt Date: 20250902
  Transmission Date: 20251021
  Serious: Yes (Other)
  Sender: ELI LILLY AND COMPANY
  Company Number: None

PATIENT
  Age: 66 Year
  Sex: Male
  Weight: 120 kg

DRUGS (1)
  1. MOUNJARO [Suspect]
     Active Substance: TIRZEPATIDE
     Indication: Type 2 diabetes mellitus
     Dosage: 10 MG, WEEKLY (1/W)
     Route: 058

REACTIONS (3)
  - Optic ischaemic neuropathy [Recovering/Resolving]
  - Lacunar infarction [Unknown]
  - Pseudopapilloedema [Unknown]

NARRATIVE: CASE EVENT DATE: 20250101
